FAERS Safety Report 18159251 (Version 3)
Quarter: 2021Q2

REPORT INFORMATION
  Report Type: Spontaneous
  Country: GB (occurrence: GB)
  Receive Date: 20200818
  Receipt Date: 20210616
  Transmission Date: 20210717
  Serious: No
  Sender: FDA-Public Use
  Company Number: GB-BEH-2020121178

PATIENT
  Age: 33 Year
  Sex: Female
  Weight: 55.9 kg

DRUGS (6)
  1. RHOPHYLAC [Suspect]
     Active Substance: HUMAN RHO(D) IMMUNE GLOBULIN
     Indication: PROPHYLAXIS
  2. RHOPHYLAC [Suspect]
     Active Substance: HUMAN RHO(D) IMMUNE GLOBULIN
     Indication: PROPHYLAXIS
     Dosage: 1500 INTERNATIONAL UNIT, SINGLE
     Route: 030
     Dates: start: 20200806, end: 20200806
  3. RHOPHYLAC [Suspect]
     Active Substance: HUMAN RHO(D) IMMUNE GLOBULIN
     Indication: PROPHYLAXIS
  4. RHOPHYLAC [Suspect]
     Active Substance: HUMAN RHO(D) IMMUNE GLOBULIN
     Indication: RHESUS ANTIGEN NEGATIVE
  5. RHOPHYLAC [Suspect]
     Active Substance: HUMAN RHO(D) IMMUNE GLOBULIN
     Indication: PROPHYLAXIS
     Dosage: 1500 INTERNATIONAL UNIT, SINGLE
     Route: 030
     Dates: start: 20200806, end: 20200806
  6. RHOPHYLAC [Suspect]
     Active Substance: HUMAN RHO(D) IMMUNE GLOBULIN
     Indication: RHESUS ANTIGEN NEGATIVE

REACTIONS (4)
  - Device issue [Recovered/Resolved]
  - Product preparation issue [Recovered/Resolved]
  - No adverse event [Recovered/Resolved]
  - Device leakage [Recovered/Resolved]

NARRATIVE: CASE EVENT DATE: 20200806
